FAERS Safety Report 5231290-3 (Version None)
Quarter: 2007Q1

REPORT INFORMATION
  Report Type: 
  Country: None (occurrence: None)
  Receive Date: 20070206
  Receipt Date: 20070129
  Transmission Date: 20070707
  Serious: Yes (Life-Threatening, Hospitalization)
  Sender: FDA-Public Use
  Company Number: JP-JNJFOC-20061000544

PATIENT
  Sex: Female
  Weight: 52 kg

DRUGS (8)
  1. REMICADE [Suspect]
     Route: 042
  2. REMICADE [Suspect]
     Route: 042
  3. REMICADE [Suspect]
     Indication: RHEUMATOID ARTHRITIS
     Route: 042
  4. RHEUMATREX [Suspect]
     Indication: RHEUMATOID ARTHRITIS
     Dosage: 6 TO 8 MG/WEEK
     Route: 048
  5. PREDONINE [Suspect]
     Indication: RHEUMATOID ARTHRITIS
     Route: 048
  6. VOLTAREN [Concomitant]
     Indication: RHEUMATOID ARTHRITIS
     Route: 048
  7. NU-LOTAN [Concomitant]
     Indication: HYPERTENSION
     Route: 048
  8. FLUITRAN [Concomitant]
     Indication: HYPERTENSION
     Route: 048

REACTIONS (3)
  - ANAEMIA [None]
  - DEPRESSED LEVEL OF CONSCIOUSNESS [None]
  - PNEUMOCYSTIS JIROVECI PNEUMONIA [None]
